FAERS Safety Report 9350011 (Version 1)
Quarter: 2013Q2

REPORT INFORMATION
  Report Type: Spontaneous
  Country: CA (occurrence: CA)
  Receive Date: 20130614
  Receipt Date: 20130614
  Transmission Date: 20140414
  Serious: Yes (Death, Hospitalization)
  Sender: FDA-Public Use
  Company Number: CA-B.I. PHARMACEUTICALS,INC./RIDGEFIELD-2013-CN-01080CN

PATIENT
  Age: 76 Year
  Sex: Female

DRUGS (6)
  1. PRADAXA [Suspect]
     Indication: ATRIAL FIBRILLATION
     Dosage: 220 MG
     Dates: start: 201209
  2. ADVAIR [Concomitant]
  3. BISOPROLOL [Concomitant]
  4. METFORMIN [Concomitant]
  5. SPIRIVA [Concomitant]
  6. MICARDIS [Concomitant]

REACTIONS (2)
  - Pneumonia aspiration [Fatal]
  - Gastrointestinal haemorrhage [Unknown]
